FAERS Safety Report 11752948 (Version 1)
Quarter: 2015Q4

REPORT INFORMATION
  Report Type: Spontaneous
  Country: US (occurrence: US)
  Receive Date: 20151119
  Receipt Date: 20151119
  Transmission Date: 20160304
  Serious: Yes (Death)
  Sender: FDA-Public Use
  Company Number: US-EMCURE-000826

PATIENT

DRUGS (4)
  1. PREDNISONE. [Concomitant]
     Active Substance: PREDNISONE
     Indication: PULMONARY TOXICITY
  2. ETOPOSIDE. [Suspect]
     Active Substance: ETOPOSIDE
     Indication: LYMPHOMA
     Dosage: 800 MG/^M2 DAILY FROM DAYS -6 TO -4 (TOTAL DOSE 2400 MG/^M2)
     Route: 042
  3. CISPLATIN. [Suspect]
     Active Substance: CISPLATIN
     Indication: LYMPHOMA
     Dosage: 40 MG/^M2 DAILY FROM DAYS -7 TO -3 (TOTAL DOSE 200 MG/^M2) PRIOR TO HSCT
     Route: 042
  4. CARMUSTINE [Suspect]
     Active Substance: CARMUSTINE
     Indication: LYMPHOMA
     Dosage: DAILY FROM DAYS -6 TO -4 (TOTAL DOSE 600 MG/^M2) PRIOR TO HSCT
     Route: 042

REACTIONS (1)
  - Sepsis [Fatal]
